FAERS Safety Report 5978014-X (Version None)
Quarter: 2008Q4

REPORT INFORMATION
  Report Type: 
  Country: None (occurrence: None)
  Receive Date: 20081125
  Receipt Date: 20081118
  Transmission Date: 20090506
  Serious: Yes (Hospitalization, Disabling)
  Sender: FDA-Public Use
  Company Number: TUK2008A00147

PATIENT
  Age: 72 Year
  Sex: Female

DRUGS (2)
  1. COMPETACT (PIOGLITAZONE HYDROCHLORIDE,METFORMIN HYDROCHLORIDE) [Suspect]
     Dosage: ORAL
     Route: 048
     Dates: start: 20080715
  2. GLICLAZIDE(GLICLAZIDE) [Concomitant]

REACTIONS (1)
  - VOCAL CORD PARALYSIS [None]
